FAERS Safety Report 9320360 (Version 1)
Quarter: 2013Q2

REPORT INFORMATION
  Report Type: Spontaneous
  Country: US (occurrence: US)
  Receive Date: 20130530
  Receipt Date: 20130530
  Transmission Date: 20140414
  Serious: Yes (Hospitalization)
  Sender: FDA-Public Use
  Company Number: US-B.I. PHARMACEUTICALS,INC./RIDGEFIELD-2013-BI-14298BP

PATIENT
  Age: 51 Year
  Sex: Female
  Weight: 83 kg

DRUGS (10)
  1. SPIRIVA [Suspect]
     Indication: LUNG DISORDER
     Dosage: 18 MCG
     Route: 055
     Dates: start: 20130329, end: 20130402
  2. ALBUTEROL [Suspect]
     Route: 055
     Dates: start: 20130227, end: 201303
  3. UNSPECIFIED NEBULIZER [Suspect]
     Dosage: FORMULATION: NEBULIZER
     Dates: start: 20130305, end: 20130315
  4. LITHIUM [Concomitant]
     Indication: BIPOLAR DISORDER
     Dosage: 400 MG
     Route: 048
     Dates: start: 1980
  5. DEPAKOTE [Concomitant]
     Indication: BIPOLAR DISORDER
     Dosage: 1000 MG
     Route: 048
     Dates: start: 201305
  6. SEROQUEL [Concomitant]
     Indication: BIPOLAR DISORDER
     Dosage: 200 MG
     Route: 048
     Dates: start: 201204, end: 201304
  7. VENTOLIN HFA [Concomitant]
     Indication: ASTHMA
     Dosage: FORMULATION: INHALATION AEROSOL
     Route: 055
     Dates: start: 201301, end: 201302
  8. UNSPECIFIED NEBULIZER TREATMENT [Concomitant]
     Indication: ASTHMA
     Route: 055
     Dates: start: 201301, end: 20130315
  9. QVAR [Concomitant]
     Indication: ASTHMA
     Dosage: FORMULATION: INHALATION AEROSOL
     Route: 055
     Dates: start: 20130405, end: 20130415
  10. BUSPAR [Concomitant]
     Indication: BIPOLAR DISORDER
     Dosage: 15 MG
     Route: 048
     Dates: start: 1980

REACTIONS (3)
  - Psychiatric symptom [Recovered/Resolved]
  - Tobacco user [Recovered/Resolved]
  - Dyspnoea [Recovered/Resolved]
